FAERS Safety Report 15384743 (Version 1)
Quarter: 2018Q3

REPORT INFORMATION
  Report Type: Report from Study
  Country: GR (occurrence: GR)
  Receive Date: 20180914
  Receipt Date: 20180914
  Transmission Date: 20181010
  Serious: Yes (Death, Life-Threatening, Hospitalization, Other)
  Sender: FDA-Public Use
  Company Number: GR-ACCORD-071824

PATIENT
  Age: 48 Year
  Sex: Male
  Weight: 59 kg

DRUGS (8)
  1. PLATINOL [Suspect]
     Active Substance: CISPLATIN
     Indication: PLASMA CELL MYELOMA RECURRENT
     Dosage: 10 MG/M2 DAILY;
     Route: 042
     Dates: start: 20160628, end: 20170120
  2. REVLIMID [Suspect]
     Active Substance: LENALIDOMIDE
     Indication: PLASMA CELL MYELOMA RECURRENT
     Dosage: 10 MILLIGRAM DAILY;
     Route: 048
     Dates: start: 20170425
  3. DEXAMETHASONE. [Suspect]
     Active Substance: DEXAMETHASONE
     Indication: PLASMA CELL MYELOMA RECURRENT
     Dosage: 40 MILLIGRAM DAILY;
     Route: 048
     Dates: start: 20160628, end: 20170120
  4. VELCADE [Suspect]
     Active Substance: BORTEZOMIB
     Indication: PLASMA CELL MYELOMA RECURRENT
     Dosage: 1.3 MG/M2 DAILY; INJECTION; ON DAYS 1, 4 AND 8 OF EACH CYCLE.
     Route: 058
     Dates: start: 20170116, end: 20170120
  5. ETOPOSIDE. [Suspect]
     Active Substance: ETOPOSIDE
     Indication: PLASMA CELL MYELOMA RECURRENT
     Dosage: 40 MG/M2 DAILY
     Dates: start: 20160628, end: 20170120
  6. CYTOXAN [Suspect]
     Active Substance: CYCLOPHOSPHAMIDE
     Indication: PLASMA CELL MYELOMA RECURRENT
     Dosage: 400 MG/M2 DAILY;
     Route: 042
     Dates: start: 20160628, end: 20170120
  7. IMNOVID [Suspect]
     Active Substance: POMALIDOMIDE
     Indication: PLASMA CELL MYELOMA RECURRENT
     Dosage: 4 MILLIGRAM DAILY
     Route: 048
     Dates: start: 20170404, end: 20170414
  8. ADRIAMYCIN [Suspect]
     Active Substance: DOXORUBICIN HYDROCHLORIDE
     Indication: PLASMA CELL MYELOMA RECURRENT
     Dosage: 10 MG/M2 DAILY
     Route: 042
     Dates: start: 20160628, end: 20170120

REACTIONS (6)
  - Plasma cell myeloma [Fatal]
  - Febrile neutropenia [Recovered/Resolved with Sequelae]
  - Multiple organ dysfunction syndrome [Fatal]
  - Pyrexia [Fatal]
  - Respiratory tract infection [Fatal]
  - Plasma cell leukaemia [Fatal]

NARRATIVE: CASE EVENT DATE: 20170104
